FAERS Safety Report 23992819 (Version 1)
Quarter: 2024Q2

REPORT INFORMATION
  Report Type: Spontaneous
  Country: PR (occurrence: PR)
  Receive Date: 20240620
  Receipt Date: 20240620
  Transmission Date: 20240716
  Serious: No
  Sender: FDA-Public Use
  Company Number: PR-JNJFOC-20240647754

PATIENT
  Age: 43 Year
  Sex: Male

DRUGS (1)
  1. XARELTO [Suspect]
     Active Substance: RIVAROXABAN
     Indication: Thrombosis
     Route: 048

REACTIONS (1)
  - False positive investigation result [Unknown]

NARRATIVE: CASE EVENT DATE: 20240101
